FAERS Safety Report 10196499 (Version 1)
Quarter: 2014Q2

REPORT INFORMATION
  Report Type: Spontaneous
  Country: CA (occurrence: None)
  Receive Date: 20140522
  Receipt Date: 20140522
  Transmission Date: 20141212
  Serious: Yes (Other)
  Sender: FDA-Public Use
  Company Number: DEP_02111_2014

PATIENT
  Age: 18 Year
  Sex: Male

DRUGS (1)
  1. CAMBIA [Suspect]
     Indication: MIGRAINE
     Dosage: 1 SACHET/DAY
     Route: 048
     Dates: start: 20140206, end: 20140402

REACTIONS (2)
  - Depression [None]
  - Suicidal ideation [None]
